FAERS Safety Report 21835399 (Version 2)
Quarter: 2023Q2

REPORT INFORMATION
  Report Type: Other
  Country: PT (occurrence: PT)
  Receive Date: 20230109
  Receipt Date: 20230516
  Transmission Date: 20230722
  Serious: Yes (Life-Threatening, Hospitalization, Other)
  Sender: FDA-Public Use
  Company Number: None

PATIENT

DRUGS (4)
  1. DEXAMETHASONE [Suspect]
     Active Substance: DEXAMETHASONE
     Indication: Maternal therapy to enhance foetal lung maturity
     Dosage: UNK
     Route: 065
  2. DEXAMETHASONE [Suspect]
     Active Substance: DEXAMETHASONE
     Dosage: 1 CYCLE
     Route: 065
  3. ATOSIBAN [Suspect]
     Active Substance: ATOSIBAN
     Indication: Threatened labour
     Dosage: 2 UNK (CYCLICAL)
     Route: 042
     Dates: start: 20220209, end: 20220212
  4. ATOSIBAN [Suspect]
     Active Substance: ATOSIBAN
     Indication: Tocolysis
     Dosage: 2 CYCLES
     Route: 065

REACTIONS (3)
  - Maternal exposure during pregnancy [Unknown]
  - Off label use [Unknown]
  - Non-cardiogenic pulmonary oedema [Recovered/Resolved]

NARRATIVE: CASE EVENT DATE: 20220210
